FAERS Safety Report 14605466 (Version 5)
Quarter: 2019Q4

REPORT INFORMATION
  Report Type: Spontaneous
  Country: US (occurrence: US)
  Receive Date: 20180306
  Receipt Date: 20191121
  Transmission Date: 20200122
  Serious: No
  Sender: FDA-Public Use
  Company Number: US-INTERCEPT-PMOCA2017001532

PATIENT
  Age: 72 Year
  Sex: Female

DRUGS (9)
  1. LORAZEPAM. [Concomitant]
     Active Substance: LORAZEPAM
  2. OCALIVA [Suspect]
     Active Substance: OBETICHOLIC ACID
     Indication: PRIMARY BILIARY CHOLANGITIS
     Dosage: 5 MG, QD
     Route: 048
     Dates: start: 20181108
  3. PLAVIX [Concomitant]
     Active Substance: CLOPIDOGREL BISULFATE
  4. OCALIVA [Suspect]
     Active Substance: OBETICHOLIC ACID
     Indication: CHRONIC HEPATITIS C
     Dosage: 5 MG, QD
     Route: 048
     Dates: start: 20171108, end: 20181011
  5. OCALIVA [Suspect]
     Active Substance: OBETICHOLIC ACID
     Indication: BILE DUCT OBSTRUCTION
  6. VENLAFAXINE [Concomitant]
     Active Substance: VENLAFAXINE HYDROCHLORIDE
  7. NORCO [Concomitant]
     Active Substance: ACETAMINOPHEN\HYDROCODONE BITARTRATE
     Indication: PAIN
  8. LAMOTRIGINE. [Concomitant]
     Active Substance: LAMOTRIGINE
  9. DILTIAZEM. [Concomitant]
     Active Substance: DILTIAZEM

REACTIONS (19)
  - Chromaturia [Not Recovered/Not Resolved]
  - Constipation [Unknown]
  - Tremor [Unknown]
  - Back pain [Unknown]
  - Meniscus injury [Recovering/Resolving]
  - Balance disorder [Recovering/Resolving]
  - Arthralgia [Unknown]
  - Throat irritation [Unknown]
  - Discomfort [Unknown]
  - Pneumonia [Unknown]
  - Product dose omission [Unknown]
  - Urine odour abnormal [Not Recovered/Not Resolved]
  - Tongue discomfort [Unknown]
  - Tongue coated [Unknown]
  - Pruritus [Recovered/Resolved]
  - Fatigue [Not Recovered/Not Resolved]
  - Peripheral swelling [Unknown]
  - Depression [Unknown]
  - Sinusitis [Unknown]

NARRATIVE: CASE EVENT DATE: 2017
